FAERS Safety Report 14184906 (Version 1)
Quarter: 2017Q4

REPORT INFORMATION
  Report Type: Report from Study
  Country: BR (occurrence: BR)
  Receive Date: 20171114
  Receipt Date: 20171114
  Transmission Date: 20180321
  Serious: Yes (Hospitalization)
  Sender: FDA-Public Use
  Company Number: PHHY2017BR167404

PATIENT
  Sex: Female
  Weight: 85 kg

DRUGS (4)
  1. EXELON PATCH [Suspect]
     Active Substance: RIVASTIGMINE
     Indication: NERVOUS SYSTEM DISORDER
     Dosage: UNK UNK, QD
     Route: 062
  2. KEPPRA [Concomitant]
     Active Substance: LEVETIRACETAM
     Indication: NERVOUS SYSTEM DISORDER
     Route: 048
  3. EXELON PATCH [Suspect]
     Active Substance: RIVASTIGMINE
     Indication: MEMORY IMPAIRMENT
  4. DEPAKENE [Concomitant]
     Active Substance: VALPROIC ACID
     Indication: NERVOUS SYSTEM DISORDER
     Route: 048

REACTIONS (1)
  - Somnolence [Not Recovered/Not Resolved]
